FAERS Safety Report 4748551-4 (Version None)
Quarter: 2005Q3

REPORT INFORMATION
  Report Type: 
  Country: None (occurrence: None)
  Receive Date: 20050819
  Receipt Date: 20050812
  Transmission Date: 20060218
  Serious: Yes (Hospitalization)
  Sender: FDA-Public Use
  Company Number: CH-SOLVAY-00305002628

PATIENT
  Age: 53 Year
  Sex: Male

DRUGS (7)
  1. REMERON [Concomitant]
     Indication: DEPRESSION
     Dosage: DAILY DOSE: 45 MILLIGRAM(S)
     Route: 048
     Dates: start: 20050101, end: 20050708
  2. FLOXYFRAL [Suspect]
     Indication: DEPRESSION
     Dosage: DAILY DOSE: 150 MILLIGRAM(S)
     Route: 048
     Dates: start: 20050101, end: 20050708
  3. CLONAZEPAM [Concomitant]
     Indication: ILL-DEFINED DISORDER
     Dosage: DAILY DOSE: .5 MILLIGRAM(S) IN THE EVENING
     Route: 048
     Dates: start: 20050101
  4. SINTROM [Suspect]
     Indication: ILL-DEFINED DISORDER
     Dosage: DAILY DOSE: 1.5 MILLIGRAM(S)
     Route: 048
     Dates: start: 20050315, end: 20050701
  5. SINTROM [Suspect]
     Dosage: DAILY DOSE:  UNKNOWN
     Route: 065
     Dates: start: 20050701
  6. IMOVANE [Concomitant]
     Indication: INSOMNIA
     Dosage: DAILY DOSE: 7.5 MILLIGRAM(S)
     Route: 048
     Dates: start: 20050101
  7. SAROTEN [Concomitant]
     Indication: ILL-DEFINED DISORDER
     Dosage: DAILY DOSE: 50 MILLIGRAM(S)
     Route: 065
     Dates: start: 20050708

REACTIONS (3)
  - DRUG INEFFECTIVE [None]
  - PROTHROMBIN TIME SHORTENED [None]
  - PULMONARY EMBOLISM [None]
